FAERS Safety Report 9837911 (Version 1)
Quarter: 2013Q4

REPORT INFORMATION
  Report Type: Spontaneous
  Country: US (occurrence: None)
  Receive Date: 20131205
  Receipt Date: 20131205
  Transmission Date: 20140711
  Serious: No
  Sender: FDA-Public Use
  Company Number: 163-POMAL-13102934

PATIENT
  Age: 4 Month
  Sex: Male
  Weight: 63 kg

DRUGS (7)
  1. POMALYST (POMALIDOMIDE) (2 MILLIGRAM, CAPSULES) [Suspect]
     Indication: PLASMA CELL MYELOMA
     Dates: start: 20130710, end: 20130927
  2. ACYCLOVIR (ACICLOVIR) (ACICLOVIR) [Concomitant]
  3. DEXAMETHASONE (DEXAMETHASONE) [Concomitant]
  4. SENOKOT (SENNA FRUIT) [Concomitant]
  5. VICODIN (VICODIN) [Concomitant]
  6. OMEPRAZOLE (OMEPRAZOLE) [Concomitant]
  7. PENICILLIN VK (PHENOXYMETHYLPENICILLIN POTASSIUM) [Concomitant]

REACTIONS (2)
  - Blood calcium increased [None]
  - Plasma cell myeloma [None]
